FAERS Safety Report 6760802-3 (Version None)
Quarter: 2010Q2

REPORT INFORMATION
  Report Type: 
  Country: None (occurrence: None)
  Receive Date: 20100607
  Receipt Date: 20100607
  Transmission Date: 20101027
  Serious: Yes (Other)
  Sender: FDA-Public Use
  Company Number: None

PATIENT
  Sex: Male
  Weight: 103 kg

DRUGS (13)
  1. WARFARIN SODIUM [Suspect]
     Indication: ATRIAL FIBRILLATION
     Dosage: 7.5MG SUNDAY + THURSDAY ONCE DAILY PO 5MG OTHER 5 DAYS OF THE WEEK ONCE DAILY PO
     Route: 048
     Dates: start: 20100414, end: 20100521
  2. WARFARIN SODIUM [Suspect]
     Indication: CEREBROVASCULAR ACCIDENT PROPHYLAXIS
     Dosage: 7.5MG SUNDAY + THURSDAY ONCE DAILY PO 5MG OTHER 5 DAYS OF THE WEEK ONCE DAILY PO
     Route: 048
     Dates: start: 20100414, end: 20100521
  3. ALLEGRA [Concomitant]
  4. FLOMAX [Concomitant]
  5. CENTRUM SILVER [Concomitant]
  6. ASPIRIN [Concomitant]
  7. TYLENOL [Concomitant]
  8. TOPROL-XL [Concomitant]
  9. HYDROCHLOROTHIAZIDE [Concomitant]
  10. LISINOPRIL [Concomitant]
  11. CRESTOR [Concomitant]
  12. CELEXOCIB [Concomitant]
  13. RANITIDINE OR ZANTAC [Concomitant]

REACTIONS (2)
  - INTERNATIONAL NORMALISED RATIO DECREASED [None]
  - PRODUCT SUBSTITUTION ISSUE [None]
